FAERS Safety Report 6123112-3 (Version None)
Quarter: 2009Q1

REPORT INFORMATION
  Report Type: 
  Country: None (occurrence: None)
  Receive Date: 20090318
  Receipt Date: 20090310
  Transmission Date: 20090719
  Serious: Yes (Death)
  Sender: FDA-Public Use
  Company Number: US-AVENTIS-200911960US

PATIENT

DRUGS (3)
  1. LANTUS [Suspect]
     Dosage: DOSE: UNK
     Route: 058
  2. LANTUS [Suspect]
     Dosage: DOSE: UNK
  3. OPTICLIK (INSULIN INJECTION PEN) [Suspect]

REACTIONS (1)
  - DEATH [None]
